FAERS Safety Report 25112000 (Version 1)
Quarter: 2025Q1

REPORT INFORMATION
  Report Type: Spontaneous
  Country: US (occurrence: None)
  Receive Date: 20250321
  Receipt Date: 20250321
  Transmission Date: 20250409
  Serious: No
  Sender: FDA-CTU
  Company Number: None

PATIENT
  Age: 64 Year

DRUGS (9)
  1. ADBRY [Suspect]
     Active Substance: TRALOKINUMAB-LDRM
     Indication: Dermatitis atopic
     Dosage: FREQUENCY : EVERY OTHER WEEK;?
     Route: 058
     Dates: start: 20241009, end: 202502
  2. TACROLIMUS [Concomitant]
     Active Substance: TACROLIMUS
  3. FINASTERIDE [Concomitant]
     Active Substance: FINASTERIDE
  4. ACETAMINOPHEN\HYDROCODONE [Concomitant]
     Active Substance: ACETAMINOPHEN\HYDROCODONE
  5. DOCUSATE SODIUM [Concomitant]
     Active Substance: DOCUSATE SODIUM
  6. DESONIDE [Concomitant]
     Active Substance: DESONIDE
  7. DILTIAZEM [Concomitant]
     Active Substance: DILTIAZEM
  8. TAMSULOSIN [Concomitant]
     Active Substance: TAMSULOSIN
  9. ELIQUIS [Concomitant]
     Active Substance: APIXABAN

REACTIONS (2)
  - Eye irritation [None]
  - Visual impairment [None]
